FAERS Safety Report 18496275 (Version 1)
Quarter: 2020Q4

REPORT INFORMATION
  Report Type: Spontaneous
  Country: US (occurrence: US)
  Receive Date: 20201112
  Receipt Date: 20201112
  Transmission Date: 20210114
  Serious: Yes (Other)
  Sender: FDA-Public Use
  Company Number: None

PATIENT
  Age: 52 Year
  Sex: Female

DRUGS (1)
  1. PERFLUTREN LIPID MICROSPHERE [Suspect]
     Active Substance: PERFLUTREN
     Indication: IMAGING PROCEDURE
     Route: 042
     Dates: start: 20201007, end: 20201007

REACTIONS (1)
  - Back pain [None]

NARRATIVE: CASE EVENT DATE: 20201007
